FAERS Safety Report 9225244 (Version 1)
Quarter: 2013Q2

REPORT INFORMATION
  Report Type: Spontaneous
  Country: US (occurrence: US)
  Receive Date: 20130411
  Receipt Date: 20130411
  Transmission Date: 20140414
  Serious: Yes (Death, Hospitalization)
  Sender: FDA-Public Use
  Company Number: PHEH2013US008147

PATIENT
  Sex: Female

DRUGS (2)
  1. TOBI [Suspect]
     Dosage: 1-2/ DAY
  2. ANTIBIOTICS [Concomitant]
     Dosage: UNK UKN, UNK

REACTIONS (3)
  - Death [Fatal]
  - Cystic fibrosis [Unknown]
  - Asthma [Unknown]
